FAERS Safety Report 5008036-7 (Version None)
Quarter: 2006Q2

REPORT INFORMATION
  Report Type: 
  Country: None (occurrence: None)
  Receive Date: 20060404
  Receipt Date: 20050702
  Transmission Date: 20061013
  Serious: Yes (Other)
  Sender: FDA-Public Use
  Company Number: 2005076000

PATIENT
  Age: 6 Year
  Sex: Male

DRUGS (5)
  1. GEODON [Suspect]
     Indication: ANGER
     Dosage: 20 MG (1 IN 1 D)
     Dates: start: 20050407
  2. GEODON [Suspect]
     Indication: IMPULSE-CONTROL DISORDER
     Dosage: 20 MG (1 IN 1 D)
     Dates: start: 20050407
  3. GEODON [Suspect]
     Indication: PSYCHOMOTOR HYPERACTIVITY
     Dosage: 20 MG (1 IN 1 D)
     Dates: start: 20050407
  4. METHYLPHENIDATE HCL [Suspect]
     Indication: ATTENTION DEFICIT/HYPERACTIVITY DISORDER
  5. FOCALIN [Suspect]
     Indication: ATTENTION DEFICIT/HYPERACTIVITY DISORDER

REACTIONS (2)
  - DYSTONIA [None]
  - EXTRAPYRAMIDAL DISORDER [None]
